FAERS Safety Report 23045709 (Version 1)
Quarter: 2023Q4

REPORT INFORMATION
  Report Type: Spontaneous
  Country: ES (occurrence: ES)
  Receive Date: 20231009
  Receipt Date: 20231009
  Transmission Date: 20240109
  Serious: Yes (Other)
  Sender: FDA-Public Use
  Company Number: None

PATIENT
  Age: 30 Year
  Sex: Male

DRUGS (5)
  1. DOXORUBICIN [Suspect]
     Active Substance: DOXORUBICIN
     Indication: Non-Hodgkin^s lymphoma
     Dosage: DOXORUBICIN , (50MG/M2)    , DOXORUBICINA (202A)
     Dates: start: 20220530, end: 20230105
  2. CYCLOPHOSPHAMIDE [Suspect]
     Active Substance: CYCLOPHOSPHAMIDE
     Indication: Non-Hodgkin^s lymphoma
     Dosage: (750MG/M2)  , CICLOFOSFAMIDA (120A)
     Dates: start: 20220530, end: 20230105
  3. CYCLOPHOSPHAMIDE [Suspect]
     Active Substance: CYCLOPHOSPHAMIDE
     Indication: Hodgkin^s disease
     Dosage: (750MG/M2) ,  CICLOFOSFAMIDA (120A)
     Dates: start: 20220530, end: 20230105
  4. ADCETRIS [Suspect]
     Active Substance: BRENTUXIMAB VEDOTIN
     Indication: Non-Hodgkin^s lymphoma
     Dosage: 145.8 MAINTENANCE MILLIGRAMS 162 MAINTENANCE MILLIGRAMS (1.8 MG/KG IV EVERY 3 WEEKS): 1ST ADMINISTER
     Dates: start: 20220530
  5. PREDNISONE [Concomitant]
     Active Substance: PREDNISONE
     Indication: Non-Hodgkin^s lymphoma
     Dosage: PREDNISONA (886A)
     Dates: start: 20220530, end: 20230105

REACTIONS (1)
  - Hepatic cytolysis [Recovered/Resolved]

NARRATIVE: CASE EVENT DATE: 20230103
